FAERS Safety Report 7814722-3 (Version None)
Quarter: 2011Q4

REPORT INFORMATION
  Report Type: 
  Country: None (occurrence: None)
  Receive Date: 20111014
  Receipt Date: 20111003
  Transmission Date: 20120403
  Serious: Yes (Hospitalization, Other)
  Sender: FDA-Public Use
  Company Number: JP-ELI_LILLY_AND_COMPANY-JP201106006580

PATIENT
  Sex: Male
  Weight: 65 kg

DRUGS (4)
  1. CISPLATIN [Concomitant]
     Indication: URETERIC CANCER
     Dosage: 80 MG, DAY 2
     Dates: start: 20100106, end: 20100201
  2. GEMZAR [Suspect]
     Indication: URETERIC CANCER
     Dosage: 1300 MG, DAY 1, 8, 15
     Route: 042
     Dates: start: 20100106, end: 20100201
  3. GEMZAR [Suspect]
     Dosage: 1300 MG, DAY 1, 8, 15
     Route: 042
     Dates: start: 20101213, end: 20110301
  4. CISPLATIN [Concomitant]
     Dosage: 80 MG, DAY 2
     Dates: start: 20101213, end: 20110301

REACTIONS (11)
  - URETERIC CANCER RECURRENT [None]
  - DEEP VEIN THROMBOSIS [None]
  - BRONCHIOLITIS [None]
  - CANCER PAIN [None]
  - PLATELET COUNT DECREASED [None]
  - GENERALISED OEDEMA [None]
  - NEUTROPENIA [None]
  - RECALL PHENOMENON [None]
  - RENAL IMPAIRMENT [None]
  - DIARRHOEA [None]
  - WHITE BLOOD CELL COUNT DECREASED [None]
